FAERS Safety Report 7225264-0 (Version None)
Quarter: 2011Q1

REPORT INFORMATION
  Report Type: 
  Country: None (occurrence: None)
  Receive Date: 20110113
  Receipt Date: 20110104
  Transmission Date: 20110831
  Serious: Yes (Other)
  Sender: FDA-Public Use
  Company Number: B0691675A

PATIENT
  Age: 33 Year
  Sex: Male

DRUGS (3)
  1. LAMICTAL [Suspect]
     Indication: EPILEPSY
     Dosage: 450MG PER DAY
     Route: 065
  2. DEPAKOTE [Suspect]
     Indication: EPILEPSY
     Dosage: 2TAB TWICE PER DAY
     Route: 065
     Dates: start: 20000101
  3. KEPPRA [Suspect]
     Indication: EPILEPSY
     Dosage: 2TAB TWICE PER DAY
     Route: 065
     Dates: start: 20060101

REACTIONS (1)
  - CONVULSION [None]
